FAERS Safety Report 5844558-4 (Version None)
Quarter: 2008Q3

REPORT INFORMATION
  Report Type: 
  Country: None (occurrence: None)
  Receive Date: 20080814
  Receipt Date: 20080813
  Transmission Date: 20090109
  Serious: Yes (Hospitalization)
  Sender: FDA-Public Use
  Company Number: PHHO2000DE01906

PATIENT
  Sex: Female

DRUGS (4)
  1. EXELON [Suspect]
     Indication: COGNITIVE DISORDER
     Dosage: 0.5-6.0 MG, BID
     Route: 048
     Dates: start: 20000229, end: 20000510
  2. EXELON [Suspect]
     Dosage: UNK
     Route: 048
     Dates: start: 20000511
  3. VESDIL (RAMIPRIL) [Concomitant]
  4. METOPROLOL TARTRATE [Concomitant]

REACTIONS (4)
  - DIZZINESS [None]
  - HEADACHE [None]
  - HYPERHIDROSIS [None]
  - NAUSEA [None]
